FAERS Safety Report 16740932 (Version 2)
Quarter: 2019Q4

REPORT INFORMATION
  Report Type: Spontaneous
  Country: US (occurrence: US)
  Receive Date: 20190826
  Receipt Date: 20191127
  Transmission Date: 20200122
  Serious: Yes (Other)
  Sender: FDA-Public Use
  Company Number: US-ASTRAZENECA-2018SF65136

PATIENT
  Age: 22857 Day
  Sex: Male

DRUGS (16)
  1. COREG [Concomitant]
     Active Substance: CARVEDILOL
  2. FISH OIL [Concomitant]
     Active Substance: FISH OIL
  3. MULTIVITAMINS [Concomitant]
     Active Substance: VITAMINS
  4. EFFIENT [Concomitant]
     Active Substance: PRASUGREL HYDROCHLORIDE
  5. PROPULSID [Concomitant]
     Active Substance: CISAPRIDE
  6. ASPIRIN. [Concomitant]
     Active Substance: ASPIRIN
  7. PRILOSEC OTC [Suspect]
     Active Substance: OMEPRAZOLE MAGNESIUM
     Indication: GASTROOESOPHAGEAL REFLUX DISEASE
     Route: 048
     Dates: start: 1996, end: 2016
  8. AMLODIPINE [Concomitant]
     Active Substance: AMLODIPINE BESYLATE
  9. IMDUR [Concomitant]
     Active Substance: ISOSORBIDE MONONITRATE
  10. LOTENSIN [Concomitant]
     Active Substance: BENAZEPRIL HYDROCHLORIDE
  11. PRILOSEC [Suspect]
     Active Substance: OMEPRAZOLE MAGNESIUM
     Indication: GASTROOESOPHAGEAL REFLUX DISEASE
     Route: 048
     Dates: start: 1996, end: 2016
  12. PRILOSEC OTC [Suspect]
     Active Substance: OMEPRAZOLE MAGNESIUM
     Indication: GASTROOESOPHAGEAL REFLUX DISEASE
     Route: 048
  13. DETROL LA [Concomitant]
     Active Substance: TOLTERODINE TARTRATE
  14. NITROQUIK [Concomitant]
  15. K-DUR [Concomitant]
     Active Substance: POTASSIUM CHLORIDE
  16. LASIX [Concomitant]
     Active Substance: FUROSEMIDE

REACTIONS (3)
  - Renal failure [Unknown]
  - Rebound acid hypersecretion [Unknown]
  - Chronic kidney disease [Not Recovered/Not Resolved]

NARRATIVE: CASE EVENT DATE: 19970211
